FAERS Safety Report 9521764 (Version 1)
Quarter: 2013Q3

REPORT INFORMATION
  Report Type: Spontaneous
  Country: US (occurrence: US)
  Receive Date: 20130913
  Receipt Date: 20130913
  Transmission Date: 20140515
  Serious: Yes (Other)
  Sender: FDA-Public Use
  Company Number: US-SUN PHARMACEUTICAL INDUSTRIES LTD-2013SUN04687

PATIENT
  Age: 76 Year
  Sex: Female

DRUGS (4)
  1. VENLAFAXINE HYDROCHLORIDE, XR 75 MG PFIZER [Suspect]
     Indication: NARCOLEPSY
     Dosage: 75 MG/DAY
     Route: 048
  2. VENLAFAXINE HYDROCHLORIDE, XR 75 MG PFIZER [Suspect]
     Indication: CATAPLEXY
     Dosage: 150 MG/DAY
     Route: 048
  3. FLUOXETINE [Suspect]
     Indication: NARCOLEPSY
  4. FLUOXETINE [Suspect]
     Indication: CATAPLEXY

REACTIONS (6)
  - Cataplexy [Recovered/Resolved]
  - Hypertension [Recovered/Resolved]
  - Hallucination [Recovered/Resolved]
  - Withdrawal syndrome [Recovered/Resolved]
  - Gastroenteritis [Recovered/Resolved]
  - Vomiting [Recovered/Resolved]
